FAERS Safety Report 6671683-0 (Version None)
Quarter: 2010Q2

REPORT INFORMATION
  Report Type: 
  Country: None (occurrence: None)
  Receive Date: 20100407
  Receipt Date: 20100330
  Transmission Date: 20101027
  Serious: Yes (Hospitalization)
  Sender: FDA-Public Use
  Company Number: US-TEVA-229621USA

PATIENT
  Sex: Male
  Weight: 93 kg

DRUGS (21)
  1. HYDROCODONE BITARTRATE + IBUPROFEN [Suspect]
     Indication: PAIN
     Dosage: 2 TABLETS AT BEDTIME
     Route: 048
     Dates: start: 20020101, end: 20051221
  2. HYDROCODONE BITARTRATE + IBUPROFEN [Concomitant]
  3. SUNITINIB MALATE [Suspect]
     Indication: RENAL CELL CARCINOMA
     Route: 048
     Dates: start: 20051026, end: 20051122
  4. DOXEPIN HCL [Suspect]
     Indication: DEPRESSION
     Dosage: 20MG, 1 OR 2 TABLETS AT BEDTIME
  5. DIAZEPAM [Suspect]
     Indication: ANXIETY
     Dosage: 5 + 2.5MG AT BEDTIME
     Route: 048
     Dates: start: 19990101
  6. TAMSULOSIN HYDROCHLORIDE [Suspect]
     Dates: start: 20020101
  7. METFORMIN [Concomitant]
     Dates: start: 20050101
  8. INSULIN GLARGINE [Concomitant]
     Dates: start: 20050101
  9. ATORVASTATIN CALCIUM [Concomitant]
     Dates: start: 19940101
  10. EZETIMIBE [Concomitant]
     Dates: start: 19950101
  11. RAMIPRIL [Concomitant]
     Dates: start: 19950101
  12. ATENOLOL [Concomitant]
     Dates: start: 19940101
  13. FINASTERIDE [Concomitant]
     Dates: start: 20020101
  14. RANITIDINE HYDROCHLORIDE [Concomitant]
     Dates: start: 20020101
  15. RANITIDINE HYDROCHLORIDE [Concomitant]
     Dates: start: 19960101
  16. MONTELUKAST SODIUM [Concomitant]
  17. SALMETEROL XINAFOATE [Concomitant]
     Dates: start: 19960101
  18. FLUTICASONE PROPIONATE [Concomitant]
     Dates: start: 20050101
  19. URSODEOXYCHOLIC ACID [Concomitant]
     Dates: start: 19900101
  20. MIRTAZAPINE [Concomitant]
     Dates: start: 19950101
  21. DOCUSATE SODIUM [Concomitant]
     Dates: start: 20010101

REACTIONS (9)
  - CHILLS [None]
  - CONFUSIONAL STATE [None]
  - ENCEPHALOPATHY [None]
  - HYPOTENSION [None]
  - METABOLIC ENCEPHALOPATHY [None]
  - PYREXIA [None]
  - SOMNOLENCE [None]
  - TOXIC ENCEPHALOPATHY [None]
  - UNEVALUABLE EVENT [None]
